FAERS Safety Report 18873966 (Version 1)
Quarter: 2021Q1

REPORT INFORMATION
  Report Type: Report from Study
  Country: US (occurrence: US)
  Receive Date: 20210210
  Receipt Date: 20210210
  Transmission Date: 20210420
  Serious: Yes (Other)
  Sender: FDA-Public Use
  Company Number: US-SHIRE-US201842393

PATIENT
  Sex: Female

DRUGS (1)
  1. HUMAN IMMUNOGLOBULIN; HYALURONIDASE [Suspect]
     Active Substance: HUMAN IMMUNOGLOBULIN G\HYALURONIDASE RECOMBINANT HUMAN
     Indication: PRIMARY IMMUNODEFICIENCY SYNDROME
     Dosage: 30 G, 1X A MONTH
     Route: 065

REACTIONS (9)
  - Influenza [Unknown]
  - Asthenia [Unknown]
  - Sinusitis [Unknown]
  - Bacterial infection [Unknown]
  - Gastrointestinal disorder [Unknown]
  - Fatigue [Unknown]
  - Weight increased [Unknown]
  - Epistaxis [Unknown]
  - Neuralgia [Unknown]
